FAERS Safety Report 7956583-8 (Version None)
Quarter: 2011Q4

REPORT INFORMATION
  Report Type: 
  Country: None (occurrence: None)
  Receive Date: 20111205
  Receipt Date: 20111129
  Transmission Date: 20120403
  Serious: Yes (Death)
  Sender: FDA-Public Use
  Company Number: PHHY2011AU099765

PATIENT
  Sex: Female

DRUGS (12)
  1. ASPIRIN [Concomitant]
     Dosage: 100 MG, QD
     Route: 048
  2. METFORMIN HCL [Concomitant]
     Dosage: 500 MG, 1 NOCTE C.C.
     Route: 048
  3. GENTEAL [Concomitant]
     Dosage: 3 MG/ML, UNK
     Route: 047
  4. MORPHINE SULFATE [Concomitant]
     Dosage: 10 MG/ML, UNK
     Route: 030
  5. ARISTOCORT TOPICAL OINTMENT [Concomitant]
     Dosage: 0.02 %, TID
  6. CHLORSIG [Concomitant]
     Dosage: 0.5 %, UNK
     Route: 047
  7. ZOLEDRONOC ACID [Suspect]
     Indication: OSTEOPOROSIS
     Dosage: 5 MG, UNK
     Route: 042
     Dates: start: 20101013
  8. ISOPTIN [Concomitant]
     Dosage: 40 MG, 1 BD
     Route: 048
  9. VENTOLIN [Concomitant]
     Dosage: 100 UG, 2-6 PUFF 2-4 HOURLY AS REUIRED
  10. LASIX [Concomitant]
     Dosage: 40 MG, UNK
  11. DIGOXIN [Concomitant]
     Dosage: 62.5 UG, UNK
  12. ACETAMINOPHEN [Concomitant]
     Dosage: 500 MG, UNK
     Route: 048

REACTIONS (1)
  - CEREBROVASCULAR DISORDER [None]
